FAERS Safety Report 10143248 (Version 1)
Quarter: 2014Q2

REPORT INFORMATION
  Report Type: Report from Study
  Country: US (occurrence: US)
  Receive Date: 20140430
  Receipt Date: 20140430
  Transmission Date: 20141212
  Serious: Yes (Other)
  Sender: FDA-Public Use
  Company Number: US-ROCHE-1385509

PATIENT
  Age: 60 Year
  Sex: Female
  Weight: 45.4 kg

DRUGS (5)
  1. AVASTIN [Suspect]
     Indication: COLORECTAL CANCER
     Route: 050
     Dates: start: 201302
  2. OXALIPLATIN [Suspect]
     Indication: PRODUCT USED FOR UNKNOWN INDICATION
     Route: 065
  3. PROCHLORPERAZINE [Concomitant]
     Indication: VOMITING
     Dosage: START DATE: 2 YEARS
     Route: 048
  4. PROCHLORPERAZINE [Concomitant]
     Indication: NAUSEA
  5. OXYCODONE [Concomitant]
     Indication: PAIN
     Route: 048
     Dates: start: 201309

REACTIONS (13)
  - Dyspepsia [Not Recovered/Not Resolved]
  - Dyspepsia [Not Recovered/Not Resolved]
  - Abdominal pain upper [Not Recovered/Not Resolved]
  - Epistaxis [Not Recovered/Not Resolved]
  - Weight decreased [Not Recovered/Not Resolved]
  - Hypertension [Unknown]
  - Chromaturia [Unknown]
  - Muscle spasms [Recovering/Resolving]
  - Peripheral coldness [Recovering/Resolving]
  - Metastases to liver [Recovering/Resolving]
  - Haemorrhage [Unknown]
  - Hypoaesthesia [Unknown]
  - Paraesthesia [Unknown]
